FAERS Safety Report 12283001 (Version 2)
Quarter: 2016Q2

REPORT INFORMATION
  Report Type: Report from Study
  Country: US (occurrence: US)
  Receive Date: 20160419
  Receipt Date: 20160427
  Transmission Date: 20160815
  Serious: Yes (Hospitalization)
  Sender: FDA-Public Use
  Company Number: US-ABBVIE-16K-163-1606535-00

PATIENT
  Age: 61 Year
  Sex: Male

DRUGS (2)
  1. TPN [Suspect]
     Active Substance: AMINO ACIDS\DEXTROSE\ELECTROLYTES NOS\SOYBEAN OIL
     Indication: INTESTINAL OBSTRUCTION
     Route: 065
  2. HUMIRA [Suspect]
     Active Substance: ADALIMUMAB
     Indication: PSORIASIS
     Route: 058
     Dates: start: 201507, end: 201602

REACTIONS (2)
  - Intestinal obstruction [Recovering/Resolving]
  - Rash [Unknown]

NARRATIVE: CASE EVENT DATE: 201603
